FAERS Safety Report 20557968 (Version 1)
Quarter: 2022Q1

REPORT INFORMATION
  Report Type: Spontaneous
  Country: US (occurrence: US)
  Receive Date: 20220307
  Receipt Date: 20220307
  Transmission Date: 20220424
  Serious: Yes (Hospitalization, Other)
  Sender: FDA-Public Use
  Company Number: US-APOTEX-2022AP004029

PATIENT
  Age: 38 Year
  Sex: Female

DRUGS (8)
  1. GABAPENTIN [Suspect]
     Active Substance: GABAPENTIN
     Indication: Product used for unknown indication
     Dosage: 2400 MILLIGRAM, BID
     Route: 048
  2. DIPHENHYDRAMINE [Interacting]
     Active Substance: DIPHENHYDRAMINE
     Indication: Product used for unknown indication
     Dosage: UNK
     Route: 048
  3. 4-AMINO-3-PHENYLBUTYRIC ACID [Interacting]
     Active Substance: 4-AMINO-3-PHENYLBUTYRIC ACID
     Indication: Withdrawal syndrome
     Dosage: UNK
     Route: 048
  4. 4-AMINO-3-PHENYLBUTYRIC ACID [Interacting]
     Active Substance: 4-AMINO-3-PHENYLBUTYRIC ACID
     Indication: Anxiety
  5. CLONAZEPAM [Suspect]
     Active Substance: CLONAZEPAM
     Indication: Product used for unknown indication
     Dosage: 5-10 MG , QD
     Route: 048
  6. FENTANYL [Suspect]
     Active Substance: FENTANYL
     Indication: Product used for unknown indication
     Dosage: 2 GRAM, QD
     Route: 065
  7. ESCITALOPRAM [Concomitant]
     Active Substance: ESCITALOPRAM OXALATE
     Indication: Product used for unknown indication
     Dosage: UNK
     Route: 065
  8. QUETIAPINE [Concomitant]
     Active Substance: QUETIAPINE
     Indication: Product used for unknown indication
     Dosage: UNK
     Route: 065

REACTIONS (6)
  - Drug use disorder [Unknown]
  - Drug interaction [Unknown]
  - Impulsive behaviour [Unknown]
  - Aggression [Unknown]
  - Mental status changes [Unknown]
  - Drug withdrawal syndrome [Unknown]

NARRATIVE: CASE EVENT DATE: 20200301
